FAERS Safety Report 9089205 (Version 1)
Quarter: 2013Q1

REPORT INFORMATION
  Report Type: Spontaneous
  Country: KR (occurrence: KR)
  Receive Date: 20130201
  Receipt Date: 20130201
  Transmission Date: 20140127
  Serious: Yes (Other)
  Sender: FDA-Public Use
  Company Number: PHHY2013KR008008

PATIENT
  Sex: 0

DRUGS (1)
  1. NILOTINIB [Suspect]
     Dosage: UNK

REACTIONS (1)
  - Hepatitis B [Unknown]
